FAERS Safety Report 9286262 (Version 1)
Quarter: 2013Q2

REPORT INFORMATION
  Report Type: Spontaneous
  Country: DE (occurrence: None)
  Receive Date: 20130508
  Receipt Date: 20130508
  Transmission Date: 20140414
  Serious: Yes (Hospitalization, Congenital Anomaly, Other)
  Sender: FDA-Public Use
  Company Number: AUR-APL-2013-03726

PATIENT
  Sex: Female
  Weight: 3.35 kg

DRUGS (1)
  1. PAROXETINE (PAROXETINE) [Suspect]
     Indication: DEPRESSION
     Dosage: 1 D
     Route: 064
     Dates: start: 20120228, end: 20121206

REACTIONS (10)
  - Maternal drugs affecting foetus [None]
  - Apgar score low [None]
  - Amniocentesis abnormal [None]
  - Neonatal respiratory distress syndrome [None]
  - Neonatal infection [None]
  - Opisthotonus [None]
  - Convulsion neonatal [None]
  - Congenital choroid plexus cyst [None]
  - Hypertriglyceridaemia [None]
  - Hypertonia [None]
